FAERS Safety Report 5661171-2 (Version None)
Quarter: 2008Q1

REPORT INFORMATION
  Report Type: 
  Country: None (occurrence: None)
  Receive Date: 20080306
  Receipt Date: 20080225
  Transmission Date: 20080703
  Serious: Yes (Hospitalization)
  Sender: FDA-Public Use
  Company Number: 6041136

PATIENT
  Age: 77 Year
  Sex: Female

DRUGS (4)
  1. BISOPROLOL FUMARATE [Suspect]
     Indication: ATRIAL FIBRILLATION
     Dosage: 1,25 MG (1,25 MG, 1 IN 1 D)
     Route: 048
     Dates: start: 20080201, end: 20080208
  2. BISOPROLOL FUMARATE [Suspect]
     Indication: MYOCARDIAL ISCHAEMIA
     Dosage: 1,25 MG (1,25 MG, 1 IN 1 D)
     Route: 048
     Dates: start: 20080201, end: 20080208
  3. DIAZEPAM [Concomitant]
  4. DIGOXIN [Concomitant]

REACTIONS (6)
  - BRADYCARDIA [None]
  - CHEST DISCOMFORT [None]
  - DIZZINESS [None]
  - DYSPNOEA [None]
  - NAUSEA [None]
  - PALPITATIONS [None]
